FAERS Safety Report 23702882 (Version 3)
Quarter: 2024Q3

REPORT INFORMATION
  Report Type: Report from Study
  Country: US (occurrence: US)
  Receive Date: 20240403
  Receipt Date: 20240713
  Transmission Date: 20241017
  Serious: No
  Sender: SANOFI AVENTIS
  Company Number: US-SA-SAC20240401000015

PATIENT
  Age: 63 Year
  Sex: Female
  Weight: 75.2 kg

DRUGS (28)
  1. DUPILUMAB [Suspect]
     Active Substance: DUPILUMAB
     Indication: Dermatitis atopic
     Dosage: 300 MG, QOW
     Route: 058
     Dates: start: 20230901
  2. AMOXICILLIN [Suspect]
     Active Substance: AMOXICILLIN
     Indication: Sinusitis
     Dosage: UNK
  3. CITALOPRAM [Concomitant]
     Active Substance: CITALOPRAM\CITALOPRAM HYDROBROMIDE
  4. OZEMPIC [Concomitant]
     Active Substance: SEMAGLUTIDE
  5. OZEMPIC [Concomitant]
     Active Substance: SEMAGLUTIDE
  6. BIOTIN [Concomitant]
     Active Substance: BIOTIN
  7. BIOTIN [Concomitant]
     Active Substance: BIOTIN
  8. NITROFURANTOIN [Concomitant]
     Active Substance: NITROFURANTOIN
  9. IBUPROFEN [Concomitant]
     Active Substance: IBUPROFEN
  10. IBUPROFEN [Concomitant]
     Active Substance: IBUPROFEN
  11. LORATADINE [Concomitant]
     Active Substance: LORATADINE
  12. ATORVASTATIN CALCIUM [Concomitant]
     Active Substance: ATORVASTATIN CALCIUM
  13. ATORVASTATIN CALCIUM [Concomitant]
     Active Substance: ATORVASTATIN CALCIUM
  14. TIZANIDINE HYDROCHLORIDE [Concomitant]
     Active Substance: TIZANIDINE HYDROCHLORIDE
  15. TIZANIDINE HYDROCHLORIDE [Concomitant]
     Active Substance: TIZANIDINE HYDROCHLORIDE
  16. METFORMIN HYDROCHLORIDE [Concomitant]
     Active Substance: METFORMIN HYDROCHLORIDE
  17. METFORMIN HYDROCHLORIDE [Concomitant]
     Active Substance: METFORMIN HYDROCHLORIDE
  18. LYRICA [Concomitant]
     Active Substance: PREGABALIN
  19. LYRICA [Concomitant]
     Active Substance: PREGABALIN
  20. FAMOTIDINE [Concomitant]
     Active Substance: FAMOTIDINE
  21. FAMOTIDINE [Concomitant]
     Active Substance: FAMOTIDINE
  22. LEVOTHYROXINE SODIUM [Concomitant]
     Active Substance: LEVOTHYROXINE SODIUM
  23. LEVOTHYROXINE SODIUM [Concomitant]
     Active Substance: LEVOTHYROXINE SODIUM
  24. LISINOPRIL [Concomitant]
     Active Substance: LISINOPRIL
  25. LISINOPRIL [Concomitant]
     Active Substance: LISINOPRIL
  26. ASPIRIN [Concomitant]
     Active Substance: ASPIRIN
  27. CITALOPRAM [Concomitant]
     Active Substance: CITALOPRAM\CITALOPRAM HYDROBROMIDE
  28. ASPIRIN [Concomitant]
     Active Substance: ASPIRIN

REACTIONS (4)
  - Drug hypersensitivity [Unknown]
  - Sinusitis [Not Recovered/Not Resolved]
  - Injection site erythema [Not Recovered/Not Resolved]
  - Injection site swelling [Not Recovered/Not Resolved]

NARRATIVE: CASE EVENT DATE: 20230901
